FAERS Safety Report 22088162 (Version 3)
Quarter: 2023Q1

REPORT INFORMATION
  Report Type: Spontaneous
  Country: GB (occurrence: GB)
  Receive Date: 20230313
  Receipt Date: 20230328
  Transmission Date: 20230418
  Serious: Yes (Hospitalization)
  Sender: FDA-Public Use
  Company Number: GB-MYLANLABS-2023M1005482

PATIENT
  Age: 57 Year
  Sex: Female

DRUGS (2)
  1. CLOZARIL [Suspect]
     Active Substance: CLOZAPINE
     Indication: Schizophrenia
     Dosage: UNK (STOP DATE 25 FEB)
     Route: 048
     Dates: start: 20220107, end: 20230305
  2. CARBIMAZOLE [Suspect]
     Active Substance: CARBIMAZOLE
     Indication: Product used for unknown indication
     Dosage: UNK
     Route: 065

REACTIONS (10)
  - Schizophrenia [Unknown]
  - Malaise [Unknown]
  - Haematocrit decreased [Unknown]
  - Mean cell haemoglobin decreased [Not Recovered/Not Resolved]
  - Fibrin D dimer increased [Unknown]
  - C-reactive protein increased [Unknown]
  - Blood bicarbonate increased [Unknown]
  - Mean cell haemoglobin concentration decreased [Unknown]
  - Therapy cessation [Unknown]
  - Contraindicated product administered [Unknown]

NARRATIVE: CASE EVENT DATE: 20230305
